FAERS Safety Report 4397130-X (Version None)
Quarter: 2004Q3

REPORT INFORMATION
  Report Type: 
  Country: None (occurrence: None)
  Receive Date: 20040708
  Receipt Date: 20040625
  Transmission Date: 20050211
  Serious: Yes (Other)
  Sender: FDA-Public Use
  Company Number: 2004038938

PATIENT
  Age: 30 Year
  Sex: Male

DRUGS (2)
  1. VIAGRA [Suspect]
     Indication: SUICIDE ATTEMPT
     Dosage: 3000 MG (100 MG), ORAL
     Route: 048
     Dates: start: 20040604
  2. ETHANOL (ETHANOL) [Suspect]
     Indication: SUICIDE ATTEMPT

REACTIONS (10)
  - ALCOHOL USE [None]
  - DEPRESSION [None]
  - FOOT FRACTURE [None]
  - MENTAL DISORDER [None]
  - OVERDOSE [None]
  - PHOTOPSIA [None]
  - SUICIDE ATTEMPT [None]
  - VISUAL ACUITY REDUCED [None]
  - VISUAL DISTURBANCE [None]
  - VISUAL FIELD DEFECT [None]
